FAERS Safety Report 9271741 (Version 2)
Quarter: 2013Q4

REPORT INFORMATION
  Report Type: Report from Study
  Country: DE (occurrence: DE)
  Receive Date: 20130506
  Receipt Date: 20131001
  Transmission Date: 20140711
  Serious: Yes (Hospitalization)
  Sender: FDA-Public Use
  Company Number: DE-SHIRE-ALL1-2013-02662

PATIENT
  Age: 29 Year
  Sex: Male
  Weight: 68.8 kg

DRUGS (17)
  1. IDURSULFASE [Suspect]
     Indication: MUCOPOLYSACCHARIDOSIS II
     Dosage: 48 MG, UNKNOWN
     Route: 041
     Dates: start: 20090421
  2. IDURSULFASE [Suspect]
     Dosage: 34.4 MG, 1X/WEEK
     Route: 041
     Dates: start: 20040113
  3. IDURSULFASE [Suspect]
     Dosage: 48.6 MG, UNKNOWN
     Route: 041
     Dates: start: 20110808
  4. DILTIAZEM HYDROCHLORIDE [Concomitant]
     Indication: CARDIOVASCULAR DISORDER
     Dosage: 60 MG, 3X/DAY:TID
     Route: 048
     Dates: start: 201108
  5. METHAMIZOL [Concomitant]
     Indication: PAIN
     Dosage: 500 MG, 2X/DAY:BID
     Route: 048
     Dates: start: 20110114, end: 20111107
  6. METHAMIZOL [Concomitant]
     Dosage: 500 MG, 2X/DAY:BID
     Route: 048
     Dates: end: 2009
  7. METHAMIZOL [Concomitant]
     Dosage: 1 G, 3X/DAY:TID
     Route: 048
     Dates: start: 20111107
  8. FORMOTEROL [Concomitant]
     Indication: PREMEDICATION
     Dosage: 12 ?G, 2X/DAY:BID
     Route: 055
     Dates: start: 20110114, end: 20111107
  9. BUDESONIDE [Concomitant]
     Indication: RESPIRATORY DISORDER
     Dosage: 200 ?G, 2X/DAY:BID
     Route: 055
     Dates: start: 20110114, end: 20111107
  10. DICLOFENAC [Concomitant]
     Indication: PAIN
     Dosage: 75 MG, 2X/DAY:BID
     Route: 048
     Dates: start: 2010
  11. CANDESARTAN [Concomitant]
     Indication: CARDIOVASCULAR DISORDER
     Dosage: 12 MG, 1X/DAY:QD
     Route: 048
  12. ATENOLOL [Concomitant]
     Indication: CARDIOVASCULAR DISORDER
     Dosage: 25 MG, 2X/DAY:BID
     Route: 048
     Dates: end: 2011
  13. ENALAPRIL [Concomitant]
     Indication: CARDIOVASCULAR DISORDER
     Dosage: 5 MG, 1X/DAY:QD
     Route: 048
     Dates: end: 2011
  14. TETRAZEPAM [Concomitant]
     Indication: PAIN
     Dosage: 50 MG, 2X/DAY:BID
     Route: 048
     Dates: end: 2011
  15. TETRAZEPAM [Concomitant]
     Indication: SLEEP DISORDER
  16. TRAMADOL [Concomitant]
     Indication: ABNORMAL BEHAVIOUR
     Dosage: 100 MG, AS REQ^D
     Route: 048
     Dates: end: 2011
  17. OMEPRAZOLE [Concomitant]
     Indication: GASTROINTESTINAL DISORDER
     Dosage: 40 MG, 1X/DAY:QD
     Route: 048
     Dates: end: 2011

REACTIONS (2)
  - Aortic valve incompetence [Recovered/Resolved]
  - Mitral valve incompetence [Recovered/Resolved]
